FAERS Safety Report 17044411 (Version 1)
Quarter: 2019Q4

REPORT INFORMATION
  Report Type: Spontaneous
  Country: US (occurrence: US)
  Receive Date: 20191117
  Receipt Date: 20191117
  Transmission Date: 20200122
  Serious: Yes (Other)
  Sender: FDA-Public Use
  Company Number: None

PATIENT
  Age: 3 Year
  Sex: Male
  Weight: 17.55 kg

DRUGS (1)
  1. RANITIDINE HYDROCHLORIDE  75MG/5ML SYRUP [Suspect]
     Active Substance: RANITIDINE HYDROCHLORIDE
     Indication: GASTROOESOPHAGEAL REFLUX DISEASE
     Dosage: ?          QUANTITY:300 DOSES;OTHER ROUTE:BY G-TUBE?
     Dates: start: 20190131, end: 20191104

REACTIONS (7)
  - Recalled product administered [None]
  - Pain in extremity [None]
  - Product quality issue [None]
  - Product contamination chemical [None]
  - Vomiting projectile [None]
  - Headache [None]
  - Gait disturbance [None]

NARRATIVE: CASE EVENT DATE: 20191015
